FAERS Safety Report 4540446-4 (Version None)
Quarter: 2004Q4

REPORT INFORMATION
  Report Type: 
  Country: None (occurrence: None)
  Receive Date: 20041229
  Receipt Date: 20041220
  Transmission Date: 20050328
  Serious: Yes (Other)
  Sender: FDA-Public Use
  Company Number: US-JNJFOC-20041205685

PATIENT
  Sex: Female
  Weight: 63.5 kg

DRUGS (3)
  1. REMICADE [Suspect]
     Route: 042
  2. REMICADE [Suspect]
     Indication: CROHN'S DISEASE
     Route: 042
  3. SYNTHROID [Concomitant]
     Dosage: AC

REACTIONS (4)
  - CARCINOID TUMOUR [None]
  - DISEASE RECURRENCE [None]
  - PSORIASIS [None]
  - RHEUMATOID ARTHRITIS [None]
